FAERS Safety Report 24307528 (Version 1)
Quarter: 2024Q3

REPORT INFORMATION
  Report Type: Spontaneous
  Country: US (occurrence: None)
  Receive Date: 20240911
  Receipt Date: 20240911
  Transmission Date: 20241017
  Serious: Yes (Hospitalization)
  Sender: Public
  Company Number: None

PATIENT
  Sex: Female
  Weight: 65.3 kg

DRUGS (1)
  1. PONATINIB HYDROCHLORIDE [Suspect]
     Active Substance: PONATINIB HYDROCHLORIDE

REACTIONS (4)
  - Bell^s palsy [None]
  - Herpes zoster oticus [None]
  - Carotid artery stenosis [None]
  - Scab [None]

NARRATIVE: CASE EVENT DATE: 20240814
